FAERS Safety Report 6083903-4 (Version None)
Quarter: 2009Q1

REPORT INFORMATION
  Report Type: 
  Country: None (occurrence: None)
  Receive Date: 20090217
  Receipt Date: 20090217
  Transmission Date: 20090719
  Serious: Yes (Death)
  Sender: FDA-Public Use
  Company Number: None

PATIENT
  Sex: Male
  Weight: 81.1939 kg

DRUGS (1)
  1. REMICADE [Suspect]
     Indication: RHEUMATOID ARTHRITIS
     Dosage: 3.7 MG/KG Q8WKS IV
     Route: 042
     Dates: start: 20070830, end: 20090113

REACTIONS (3)
  - ABDOMINAL PAIN [None]
  - CARDIAC ARREST [None]
  - CHEST PAIN [None]
